FAERS Safety Report 24372734 (Version 4)
Quarter: 2024Q4

REPORT INFORMATION
  Report Type: Spontaneous
  Country: US (occurrence: US)
  Receive Date: 20240927
  Receipt Date: 20241121
  Transmission Date: 20250114
  Serious: No
  Sender: PFIZER
  Company Number: US-PFIZER INC-PV202400057885

PATIENT
  Age: 15 Year
  Sex: Male

DRUGS (3)
  1. GENOTROPIN [Suspect]
     Active Substance: SOMATROPIN
     Indication: Hypopituitarism
     Dosage: DAILY DOSE: 1.9 MG/DAY 7 DAYS/WEEK (ALTERNATE 1.8 AND 2 MG)
  2. GENOTROPIN [Suspect]
     Active Substance: SOMATROPIN
     Indication: Growth hormone deficiency
     Dosage: ALTERNATES 1.6MG/1.8MG
     Route: 058
     Dates: start: 202203
  3. GENOTROPIN [Suspect]
     Active Substance: SOMATROPIN
     Dosage: ALTERNATES 1.6MG/1.8MG
     Route: 058
     Dates: start: 202203

REACTIONS (5)
  - Drug dose omission by device [Unknown]
  - Product residue present [Unknown]
  - Device information output issue [Unknown]
  - Device leakage [Unknown]
  - Expired device used [Unknown]
